FAERS Safety Report 4335884-9 (Version None)
Quarter: 2004Q2

REPORT INFORMATION
  Report Type: 
  Country: None (occurrence: None)
  Receive Date: 20040405
  Receipt Date: 20040331
  Transmission Date: 20050107
  Serious: Yes (Hospitalization)
  Sender: FDA-Public Use
  Company Number: FR-JNJFOC-20040400106

PATIENT
  Age: 82 Year
  Sex: Female

DRUGS (6)
  1. ZALDIAR (TRAMADOL/APAP) TABLETS [Suspect]
     Dosage: 6 DOSE(S), 1 IN 1 DAY, ORAL
     Route: 048
     Dates: start: 20030501
  2. VOLTAREN [Concomitant]
  3. OMEPRAZOLE [Concomitant]
  4. EUPRESSYL (URAPIDIL) [Concomitant]
  5. FENOFEBRATE (FENOFEBRATE) [Concomitant]
  6. NORFLOXACINE (NORFLOXACINE) [Concomitant]

REACTIONS (2)
  - DERMATITIS BULLOUS [None]
  - TOXIC SKIN ERUPTION [None]
